FAERS Safety Report 4887033-6 (Version None)
Quarter: 2006Q1

REPORT INFORMATION
  Report Type: 
  Country: None (occurrence: None)
  Receive Date: 20060120
  Receipt Date: 20000929
  Transmission Date: 20060701
  Serious: Yes (Death)
  Sender: FDA-Public Use
  Company Number: US-MERCK-00100022

PATIENT
  Age: 73 Year
  Sex: Female

DRUGS (2)
  1. TYLENOL W/ CODEINE [Concomitant]
     Route: 065
  2. VIOXX [Suspect]
     Indication: OSTEOARTHRITIS
     Route: 048
     Dates: start: 20000701

REACTIONS (3)
  - DEATH [None]
  - DRUG INEFFECTIVE [None]
  - PAIN [None]
